FAERS Safety Report 5394971-7 (Version None)
Quarter: 2007Q3

REPORT INFORMATION
  Report Type: 
  Country: None (occurrence: None)
  Receive Date: 20070724
  Receipt Date: 20070717
  Transmission Date: 20080115
  Serious: Yes (Other)
  Sender: FDA-Public Use
  Company Number: PHBS2007CH12037

PATIENT
  Age: 57 Year
  Sex: Female

DRUGS (4)
  1. TEGRETOL [Suspect]
     Dosage: 1400 MG/DAY
     Route: 065
     Dates: start: 20061001
  2. ETHOSUXIMIDE [Concomitant]
  3. MALIASIN [Concomitant]
     Dates: end: 20060101
  4. APHENYLBARBIT [Concomitant]
     Dates: end: 20060101

REACTIONS (2)
  - FRACTURE [None]
  - OSTEOMALACIA [None]
